FAERS Safety Report 8478924-8 (Version None)
Quarter: 2012Q2

REPORT INFORMATION
  Report Type: 
  Country: None (occurrence: None)
  Receive Date: 20120629
  Receipt Date: 20120626
  Transmission Date: 20120825
  Serious: Yes (Hospitalization, Other)
  Sender: FDA-Public Use
  Company Number: US-CELGENEUS-163-21880-12042162

PATIENT
  Sex: Female
  Weight: 70.824 kg

DRUGS (7)
  1. REVLIMID [Suspect]
     Indication: MULTIPLE MYELOMA
     Dosage: 25 MILLIGRAM
     Route: 048
     Dates: start: 20120326
  2. DEXAMETHASONE [Concomitant]
     Dosage: 40 MILLIGRAM
     Route: 065
     Dates: start: 20120307
  3. DIAZEPAM [Concomitant]
     Indication: SLEEP DISORDER
     Dosage: 2 MILLIGRAM
     Route: 065
  4. LASIX [Concomitant]
     Dosage: 20 MILLIGRAM
     Route: 048
  5. PROCHLORPERAZINE [Concomitant]
     Indication: NAUSEA
     Dosage: 10 MILLIGRAM
     Route: 065
     Dates: start: 20120312
  6. PROCHLORPERAZINE [Concomitant]
     Indication: VOMITING
  7. ACYCLOVIR [Concomitant]
     Dosage: 400 MILLIGRAM
     Route: 065
     Dates: start: 20120512

REACTIONS (5)
  - LOSS OF CONSCIOUSNESS [None]
  - HYPOTENSION [None]
  - HYPOKALAEMIA [None]
  - PATHOLOGICAL FRACTURE [None]
  - DIZZINESS [None]
